FAERS Safety Report 10271185 (Version 1)
Quarter: 2014Q3

REPORT INFORMATION
  Report Type: Spontaneous
  Country: US (occurrence: US)
  Receive Date: 20140701
  Receipt Date: 20140701
  Transmission Date: 20150326
  Serious: No
  Sender: FDA-Public Use
  Company Number: US-GILEAD-2014-0107024

PATIENT
  Sex: Female

DRUGS (1)
  1. LETAIRIS [Suspect]
     Active Substance: AMBRISENTAN
     Indication: PRODUCT USED FOR UNKNOWN INDICATION
     Dosage: 10 MG, QD
     Route: 065
     Dates: start: 20110624

REACTIONS (6)
  - Pain [Unknown]
  - Fall [Unknown]
  - Disorientation [Unknown]
  - Staphylococcal infection [Unknown]
  - Syncope [Unknown]
  - Spinal column injury [Unknown]
